FAERS Safety Report 6748692-6 (Version None)
Quarter: 2010Q2

REPORT INFORMATION
  Report Type: 
  Country: None (occurrence: None)
  Receive Date: 20100601
  Receipt Date: 20100521
  Transmission Date: 20101027
  Serious: Yes (Other)
  Sender: FDA-Public Use
  Company Number: FR-JNJFOC-20100506505

PATIENT
  Age: 65 Year
  Sex: Male
  Weight: 81 kg

DRUGS (8)
  1. REMICADE [Suspect]
     Indication: COLITIS ULCERATIVE
     Route: 042
  2. HUMIRA [Suspect]
     Indication: COLITIS ULCERATIVE
     Route: 058
  3. METHOTREXATE [Suspect]
     Indication: COLITIS ULCERATIVE
     Route: 030
  4. SPECIAFOLDINE [Concomitant]
     Route: 048
  5. HYDROCORTISONE [Concomitant]
     Indication: COLITIS ULCERATIVE
     Route: 048
  6. IDEOS [Concomitant]
     Route: 048
  7. ALL OTHER THERAPEUTIC PRODUCTS [Concomitant]
     Indication: ABDOMINAL PAIN
     Route: 048
  8. PENTASA [Concomitant]

REACTIONS (2)
  - PROSTATE CANCER [None]
  - PROSTATIC SPECIFIC ANTIGEN INCREASED [None]
